FAERS Safety Report 12516180 (Version 3)
Quarter: 2016Q3

REPORT INFORMATION
  Report Type: Spontaneous
  Country: US (occurrence: US)
  Receive Date: 20160630
  Receipt Date: 20160829
  Transmission Date: 20161109
  Serious: Yes (Hospitalization)
  Sender: FDA-Public Use
  Company Number: US-JNJFOC-20160527993

PATIENT
  Age: 58 Year
  Sex: Male

DRUGS (3)
  1. XARELTO [Suspect]
     Active Substance: RIVAROXABAN
     Indication: PULMONARY EMBOLISM
     Dosage: 15 MG TWICE DAILY FOR 17 DAYS AND THEN 20 MG DAILY FOR 6 MONTHS
     Route: 048
     Dates: start: 201310, end: 201310
  2. XARELTO [Suspect]
     Active Substance: RIVAROXABAN
     Indication: THROMBOSIS
     Dosage: 15 MG TWICE DAILY FOR 17 DAYS AND THEN 20 MG DAILY FOR 6 MONTHS
     Route: 048
     Dates: start: 201310, end: 201310
  3. ASPIRIN. [Suspect]
     Active Substance: ASPIRIN
     Indication: PULMONARY EMBOLISM
     Route: 048
     Dates: end: 201310

REACTIONS (2)
  - Gastritis haemorrhagic [Unknown]
  - Haemorrhagic arteriovenous malformation [Unknown]

NARRATIVE: CASE EVENT DATE: 201310
